FAERS Safety Report 7105716-4 (Version None)
Quarter: 2010Q4

REPORT INFORMATION
  Report Type: 
  Country: None (occurrence: None)
  Receive Date: 20101116
  Receipt Date: 20101108
  Transmission Date: 20110411
  Serious: Yes (Hospitalization)
  Sender: FDA-Public Use
  Company Number: PHHY2010IT72743

PATIENT
  Sex: Male

DRUGS (2)
  1. TEGRETOL [Suspect]
     Indication: EPILEPSY
     Dosage: 1200 MG, QD
     Route: 048
     Dates: start: 20100810, end: 20100903
  2. TARGOCID [Concomitant]
     Dosage: 200 MG/3 ML DAILY 600 MG
     Route: 042
     Dates: start: 20100828, end: 20100905

REACTIONS (2)
  - ENCEPHALITIS [None]
  - LEUKOPENIA [None]
